FAERS Safety Report 8454963-8 (Version None)
Quarter: 2012Q2

REPORT INFORMATION
  Report Type: 
  Country: None (occurrence: None)
  Receive Date: 20120621
  Receipt Date: 20120618
  Transmission Date: 20120825
  Serious: No
  Sender: FDA-Public Use
  Company Number: US-PFIZER INC-2012091757

PATIENT
  Sex: Female

DRUGS (13)
  1. ZOLOFT [Suspect]
     Indication: DEPRESSION
     Dosage: UNK
  2. VITAMIN A [Suspect]
     Indication: HYPOVITAMINOSIS
     Dosage: UNK, DAILY
  3. ZOLOFT [Suspect]
     Dosage: 150 MG, DAILY
     Dates: start: 20120101, end: 20120101
  4. ZOLOFT [Suspect]
     Dosage: 100 MG DAILY
     Dates: start: 20101101, end: 20120101
  5. VALIUM [Suspect]
     Indication: SLEEP DISORDER
     Dosage: 5 MG, AS NEEDED (ONE TO TWO TABLETS)
  6. ULTRAM [Suspect]
     Indication: PAIN IN EXTREMITY
  7. LYRICA [Suspect]
     Indication: SLEEP DISORDER
     Dosage: 150 MG, DAILY
  8. LYRICA [Suspect]
     Indication: NEUROPATHY PERIPHERAL
  9. ABILIFY [Suspect]
     Dosage: 100 MG, UNK
  10. ULTRAM [Suspect]
     Indication: RESTLESS LEGS SYNDROME
  11. VALIUM [Suspect]
     Indication: ANXIETY
     Dosage: 5 MG DAILY
     Dates: start: 20120101
  12. VALIUM [Suspect]
     Indication: PALPITATIONS
     Dosage: 5 MG, 3X/DAY
     Dates: start: 20120101, end: 20120101
  13. ULTRAM [Suspect]
     Indication: SLEEP DISORDER
     Dosage: 50 MG, AS NEEDED (1 OR 2 TABLETS EVERY 4 TO 6 HOURS)

REACTIONS (8)
  - VITAMIN B12 DEFICIENCY [None]
  - NAUSEA [None]
  - FALL [None]
  - DRUG INEFFECTIVE [None]
  - FEELING ABNORMAL [None]
  - HYPOVITAMINOSIS [None]
  - DIZZINESS [None]
  - TREMOR [None]
